FAERS Safety Report 17917428 (Version 1)
Quarter: 2020Q2

REPORT INFORMATION
  Report Type: Spontaneous
  Country: US (occurrence: US)
  Receive Date: 20200619
  Receipt Date: 20200619
  Transmission Date: 20200714
  Serious: No
  Sender: FDA-Public Use
  Company Number: US-AKRON, INC.-2086275

PATIENT
  Sex: Female

DRUGS (1)
  1. ZIOPTAN [Suspect]
     Active Substance: TAFLUPROST
     Route: 047
     Dates: end: 20200527

REACTIONS (3)
  - Wheezing [Recovering/Resolving]
  - Cough [Recovering/Resolving]
  - Pulmonary congestion [Recovering/Resolving]
